FAERS Safety Report 13463949 (Version 1)
Quarter: 2017Q2

REPORT INFORMATION
  Report Type: Spontaneous
  Country: US (occurrence: US)
  Receive Date: 20170420
  Receipt Date: 20170420
  Transmission Date: 20170830
  Serious: Yes (Other)
  Sender: FDA-Public Use
  Company Number: US-ROCHE-663813

PATIENT
  Age: 16 Year
  Sex: Male
  Weight: 79.4 kg

DRUGS (2)
  1. ACCUTANE [Suspect]
     Active Substance: ISOTRETINOIN
     Indication: ACNE
     Dosage: STRENGTH: 40 MG AND 20 MG
     Route: 065
     Dates: start: 20010907, end: 20020131
  2. ACCUTANE [Suspect]
     Active Substance: ISOTRETINOIN
     Route: 065
     Dates: start: 20030116, end: 20030816

REACTIONS (7)
  - Inflammatory bowel disease [Unknown]
  - Depression [Unknown]
  - Dry eye [Unknown]
  - Dry skin [Recovering/Resolving]
  - Back pain [Recovered/Resolved]
  - Proctitis ulcerative [Unknown]
  - Chapped lips [Recovering/Resolving]

NARRATIVE: CASE EVENT DATE: 20011005
